FAERS Safety Report 7475617-0 (Version None)
Quarter: 2011Q2

REPORT INFORMATION
  Report Type: 
  Country: None (occurrence: None)
  Receive Date: 20110512
  Receipt Date: 20110301
  Transmission Date: 20111010
  Serious: Yes (Hospitalization)
  Sender: FDA-Public Use
  Company Number: SE-PFIZER INC-2011100010

PATIENT
  Age: 4 Year
  Sex: Female

DRUGS (3)
  1. IBUPROFEN [Suspect]
     Indication: COUGH
  2. IBUPROFEN [Suspect]
     Indication: FLUID INTAKE REDUCED
  3. IBUPROFEN [Suspect]
     Indication: PYREXIA
     Dosage: 125 MG, 1X/DAY
     Route: 054
     Dates: start: 20110228, end: 20110228

REACTIONS (3)
  - ANAPHYLACTIC REACTION [None]
  - CIRCULATORY COLLAPSE [None]
  - SYNCOPE [None]
